FAERS Safety Report 9192418 (Version 1)
Quarter: 2013Q1

REPORT INFORMATION
  Report Type: Spontaneous
  Country: US (occurrence: None)
  Receive Date: 20120703
  Receipt Date: 20120703
  Transmission Date: 20140127
  Serious: Yes (Other)
  Sender: FDA-Public Use
  Company Number: PHEH2012US005512

PATIENT
  Age: 58 Year
  Sex: Female
  Weight: 63.9 kg

DRUGS (9)
  1. GILENYA (FTY) CAPSULE, 0.5 MG [Suspect]
     Indication: MULTIPLE SCLEROSIS
     Route: 048
     Dates: start: 20120227, end: 20120301
  2. BACLOFEN (BACLOFEN) TABLET [Concomitant]
  3. GABAPENTIN (GABAPENTIN) CAPSULE [Concomitant]
  4. ASA (ACETYLSALICYLIC ACID) [Concomitant]
  5. CALCIUM (CALICUM) TABLET [Concomitant]
  6. VITAMIN D3 (COLECALCIFEROL) TABLET [Concomitant]
  7. COLACE (DOCUSATE SODIUM) [Concomitant]
  8. DETROL (TOLTERODINE L-TARTRATE) CAPSULE [Concomitant]
  9. LEVOTHYROXINE (LEVOTHYROXINE) TABLET [Concomitant]

REACTIONS (6)
  - Bradycardia [None]
  - Feeling abnormal [None]
  - Palpitations [None]
  - Rash [None]
  - Chills [None]
  - Asthenia [None]
